FAERS Safety Report 4710300-3 (Version None)
Quarter: 2005Q3

REPORT INFORMATION
  Report Type: 
  Country: None (occurrence: None)
  Receive Date: 20050711
  Receipt Date: 20020326
  Transmission Date: 20060218
  Serious: Yes (Other)
  Sender: FDA-Public Use
  Company Number: 200212529GDDC

PATIENT
  Sex: Female
  Weight: 67.2 kg

DRUGS (4)
  1. TAXOTERE [Suspect]
     Indication: BREAST CANCER
     Dosage: DOSE: 75-60
     Route: 042
     Dates: start: 20010725, end: 20011115
  2. DOXORUBICIN HCL [Suspect]
     Indication: BREAST CANCER
     Dosage: DOSE: 50-40
     Route: 042
     Dates: start: 20010725, end: 20011115
  3. CYCLOPHOSPHAMIDE [Suspect]
     Indication: BREAST CANCER
     Dosage: DOSE: 500-400
     Route: 042
     Dates: start: 20010725, end: 20011115
  4. GLYBURIDE [Concomitant]
     Dosage: DOSE: UNK
     Route: 048

REACTIONS (7)
  - HAEMOGLOBIN DECREASED [None]
  - NEUTROPENIA [None]
  - NEUTROPHIL COUNT DECREASED [None]
  - PANCYTOPENIA [None]
  - PLATELET COUNT DECREASED [None]
  - THROMBOCYTOPENIA [None]
  - WHITE BLOOD CELL COUNT DECREASED [None]
